FAERS Safety Report 4422192-0 (Version None)
Quarter: 2004Q3

REPORT INFORMATION
  Report Type: 
  Country: None (occurrence: None)
  Receive Date: 20040810
  Receipt Date: 20020814
  Transmission Date: 20050211
  Serious: Yes (Death)
  Sender: FDA-Public Use
  Company Number: US-ROCHE-319597

PATIENT
  Age: 36 Year
  Sex: Male

DRUGS (1)
  1. LARIAM [Suspect]
     Indication: MALARIA PROPHYLAXIS
     Dosage: TAKEN WEEKLY
     Route: 048
     Dates: start: 20020228, end: 20020606

REACTIONS (12)
  - ABNORMAL BEHAVIOUR [None]
  - AGGRESSION [None]
  - ANGER [None]
  - COMMUNICATION DISORDER [None]
  - COMPLETED SUICIDE [None]
  - DISORIENTATION [None]
  - FEELING ABNORMAL [None]
  - MOOD ALTERED [None]
  - NERVOUSNESS [None]
  - PSYCHOTIC DISORDER [None]
  - SOCIAL AVOIDANT BEHAVIOUR [None]
  - TREMOR [None]
